FAERS Safety Report 20991327 (Version 1)
Quarter: 2022Q2

REPORT INFORMATION
  Report Type: Spontaneous
  Country: FR (occurrence: FR)
  Receive Date: 20220622
  Receipt Date: 20220622
  Transmission Date: 20220720
  Serious: Yes (Hospitalization)
  Sender: FDA-Public Use
  Company Number: None

PATIENT
  Age: 66 Year
  Sex: Female
  Weight: 77 kg

DRUGS (7)
  1. HYDROCHLOROTHIAZIDE\VALSARTAN [Suspect]
     Active Substance: HYDROCHLOROTHIAZIDE\VALSARTAN
     Indication: Essential hypertension
     Dosage: 125/12.5MG 1X/JOUR
     Route: 048
  2. FLUOROURACIL [Suspect]
     Active Substance: FLUOROURACIL
     Indication: Oropharyngeal cancer stage III
     Dosage: 600 MG/M2, QD
     Route: 042
     Dates: start: 20220524, end: 20220526
  3. CARBOPLATIN [Suspect]
     Active Substance: CARBOPLATIN
     Indication: Oropharyngeal cancer stage III
     Dosage: 70 MG/M2, QD
     Route: 042
     Dates: start: 20220524, end: 20220526
  4. MEDROL [Concomitant]
     Active Substance: METHYLPREDNISOLONE
     Indication: Chemotherapy side effect prophylaxis
     Dosage: 80 MG, QD
     Route: 042
     Dates: start: 20220524, end: 20220526
  5. ONDANSETRON [Concomitant]
     Active Substance: ONDANSETRON
     Indication: Chemotherapy side effect prophylaxis
     Dosage: 8 MG, Q12H
     Route: 042
     Dates: start: 20220524, end: 20220526
  6. EMEND [Concomitant]
     Active Substance: APREPITANT
     Indication: Chemotherapy side effect prophylaxis
     Dosage: 125MG J1 PUIS 80MG J2 ET J3
     Route: 048
     Dates: start: 20220524, end: 20220526
  7. AMLODIPINE BESYLATE [Concomitant]
     Active Substance: AMLODIPINE BESYLATE
     Indication: Essential hypertension
     Dosage: 5 MG, QD
     Route: 048

REACTIONS (2)
  - Posterior reversible encephalopathy syndrome [Recovering/Resolving]
  - Acute kidney injury [Recovering/Resolving]

NARRATIVE: CASE EVENT DATE: 20220526
